FAERS Safety Report 25211729 (Version 1)
Quarter: 2025Q2

REPORT INFORMATION
  Report Type: Spontaneous
  Country: CN (occurrence: CN)
  Receive Date: 20250418
  Receipt Date: 20250418
  Transmission Date: 20250716
  Serious: Yes (Other)
  Sender: JOHNSON AND JOHNSON
  Company Number: CN-JNJFOC-20250415787

PATIENT
  Age: 65 Year
  Sex: Female
  Weight: 53 kg

DRUGS (2)
  1. SPRAVATO [Suspect]
     Active Substance: ESKETAMINE
     Indication: Anxiety
     Route: 045
     Dates: start: 20250403, end: 20250403
  2. SPRAVATO [Suspect]
     Active Substance: ESKETAMINE
     Indication: Depression

REACTIONS (2)
  - Blood pressure increased [Recovering/Resolving]
  - Eye haemorrhage [Recovered/Resolved]

NARRATIVE: CASE EVENT DATE: 20250403
